FAERS Safety Report 11302947 (Version 1)
Quarter: 2015Q3

REPORT INFORMATION
  Report Type: Spontaneous
  Country: US (occurrence: US)
  Receive Date: 20150723
  Receipt Date: 20150723
  Transmission Date: 20151125
  Serious: No
  Sender: FDA-Public Use
  Company Number: US-TEVA-580098ACC

PATIENT
  Age: 40 Year
  Sex: Female
  Weight: 81.72 kg

DRUGS (4)
  1. ONE-A- DAY VITAMINS [Concomitant]
     Indication: SUPPLEMENTATION THERAPY
  2. GARLIC PILL [Concomitant]
     Indication: HYPERTENSION
  3. TAKE ACTION [Suspect]
     Active Substance: LEVONORGESTREL
     Indication: POST COITAL CONTRACEPTION
     Dosage: 1.5 MILLIGRAM DAILY;
     Route: 048
     Dates: start: 20150714, end: 20150714
  4. CRANBERRY PILL [Concomitant]
     Indication: URINARY TRACT DISORDER
     Dates: start: 20150715

REACTIONS (3)
  - Menstruation irregular [Unknown]
  - Dizziness [Not Recovered/Not Resolved]
  - Dysmenorrhoea [Not Recovered/Not Resolved]

NARRATIVE: CASE EVENT DATE: 20150714
